FAERS Safety Report 8785889 (Version 1)
Quarter: 2012Q4

REPORT INFORMATION
  Report Type: 
  Country: CO (occurrence: CO)
  Receive Date: 20120914
  Receipt Date: 20120914
  Transmission Date: 20130627
  Serious: Yes (Death)
  Sender: FDA-Public Use
  Company Number: PHHY2012CO079684

PATIENT
  Age: 84 Year
  Sex: Male

DRUGS (3)
  1. EXFORGE HCT [Suspect]
     Dosage: 1 DF, UNK
     Route: 048
  2. CLINDAMYCIN [Concomitant]
  3. KEFLEX [Concomitant]

REACTIONS (1)
  - Renal failure [Fatal]
